FAERS Safety Report 7386652-5 (Version None)
Quarter: 2011Q1

REPORT INFORMATION
  Report Type: 
  Country: None (occurrence: None)
  Receive Date: 20110331
  Receipt Date: 20110324
  Transmission Date: 20110831
  Serious: Yes (Life-Threatening)
  Sender: FDA-Public Use
  Company Number: FR-ABBOTT-11P-056-0714129-00

PATIENT
  Sex: Female

DRUGS (1)
  1. HUMIRA [Suspect]
     Indication: ANKYLOSING SPONDYLITIS
     Route: 058
     Dates: start: 20110201, end: 20110301

REACTIONS (5)
  - APHONIA [None]
  - LARYNGEAL OEDEMA [None]
  - SUFFOCATION FEELING [None]
  - COUGH [None]
  - DYSPNOEA [None]
